FAERS Safety Report 21608284 (Version 2)
Quarter: 2023Q2

REPORT INFORMATION
  Report Type: Spontaneous
  Country: US (occurrence: US)
  Receive Date: 20221117
  Receipt Date: 20230503
  Transmission Date: 20230722
  Serious: Yes (Hospitalization)
  Sender: FDA-Public Use
  Company Number: US-BRISTOL-MYERS SQUIBB COMPANY-2022-139349

PATIENT
  Age: 90 Year
  Sex: Female

DRUGS (21)
  1. ELIQUIS [Suspect]
     Active Substance: APIXABAN
     Indication: Cerebrovascular accident prophylaxis
     Route: 048
  2. ELIQUIS [Suspect]
     Active Substance: APIXABAN
     Route: 048
     Dates: start: 20170503
  3. ALBUTEROL SULFATE [Concomitant]
     Active Substance: ALBUTEROL SULFATE
     Indication: Product used for unknown indication
     Dosage: 2.5 MG/3 ML (0.083) SOLUTION FOR NEBULIZATION?PRN AS NEEDED
     Dates: start: 20200313
  4. ALBUTEROL SULFATE [Concomitant]
     Active Substance: ALBUTEROL SULFATE
     Indication: Product used for unknown indication
     Dosage: 90 MCG/ACTUATION AEROSOL INHALER?2 PUFFS EVERY 6 HOURS
     Route: 048
  5. BENZONATATE [Concomitant]
     Active Substance: BENZONATATE
     Indication: Product used for unknown indication
     Dosage: TAKE 1 CAPSULE BY MOUTH TWICE A DAY FOR 3 DAYS
     Route: 048
  6. BUDESONIDE [Concomitant]
     Active Substance: BUDESONIDE
     Indication: Product used for unknown indication
     Dosage: 0.25 MG/ 2 ML SUSPENSION FOR NEBULIZATION ?INHALE THE CONTENT OF 1 VIAL NEBULIZER TWICE A DAY AS NEE
  7. CHOLECALCIFEROL [Concomitant]
     Active Substance: CHOLECALCIFEROL
     Indication: Product used for unknown indication
  8. COLCHICINE [Concomitant]
     Active Substance: COLCHICINE
     Indication: Product used for unknown indication
  9. CYANOCOBALAMIN [Concomitant]
     Active Substance: CYANOCOBALAMIN
     Indication: Product used for unknown indication
  10. DILTIAZEM [Concomitant]
     Active Substance: DILTIAZEM
     Indication: Product used for unknown indication
     Dosage: EXTENDED RELEASE 24 H
     Route: 048
  11. FUROSEMIDE [Concomitant]
     Active Substance: FUROSEMIDE
     Indication: Product used for unknown indication
     Route: 048
  12. GABAPENTIN [Concomitant]
     Active Substance: GABAPENTIN
     Indication: Product used for unknown indication
     Route: 048
  13. ALBUTEROL\IPRATROPIUM [Concomitant]
     Active Substance: ALBUTEROL\IPRATROPIUM
     Indication: Product used for unknown indication
     Dosage: IPRATROPIUM 0.5 MG- ALBUTEROL 3MG (2.5 MG BASE)/ 3ML NEBULIZATION SOLUTION?INHALE THE CONTENTS OF VI
  14. MAGNESIUM [Concomitant]
     Active Substance: MAGNESIUM
     Indication: Product used for unknown indication
  15. METHENAMINE HIPPURATE [Concomitant]
     Active Substance: METHENAMINE HIPPURATE
     Indication: Product used for unknown indication
     Route: 048
  16. METHENAMINE MANDELATE [Concomitant]
     Active Substance: METHENAMINE MANDELATE
     Indication: Product used for unknown indication
     Route: 048
  17. NITROFURANTOIN MONOHYDRATE/ MACROCRYSTALS [Concomitant]
     Indication: Product used for unknown indication
     Route: 048
  18. SULFAMETHOXAZOLE AND TRIMETHOPRIM [Concomitant]
     Active Substance: SULFAMETHOXAZOLE\TRIMETHOPRIM
     Indication: Product used for unknown indication
     Dosage: SULFAMETHOXAZOLE 800 MG-TRIMETHOPRIM 160 MG TABLET , TAKE ONE TABLET BY MOUTH TWICE A DAY FOR 10 DAY
     Route: 048
  19. POTASSIUM [Concomitant]
     Active Substance: POTASSIUM
     Indication: Product used for unknown indication
     Dates: start: 20180905, end: 20190306
  20. POLYMYXIN B SULFATE [Concomitant]
     Active Substance: POLYMYXIN B SULFATE
     Indication: Product used for unknown indication
     Dosage: POLYMYXIN B SULFATE 10,000 UNIT-TRIMETHOPRIM I MG/ML EYE DROPS ?INSTILL 1 DROP INTO AFFECTED EYE EVE
  21. AZITHROMYCIN [Concomitant]
     Active Substance: AZITHROMYCIN
     Indication: Product used for unknown indication
     Dates: start: 20190306, end: 20190306

REACTIONS (4)
  - Treatment noncompliance [Unknown]
  - Fall [Recovering/Resolving]
  - COVID-19 [Recovering/Resolving]
  - Oedema peripheral [Recovering/Resolving]
